FAERS Safety Report 4968418-6 (Version None)
Quarter: 2006Q2

REPORT INFORMATION
  Report Type: 
  Country: None (occurrence: None)
  Receive Date: 20060410
  Receipt Date: 20051109
  Transmission Date: 20061013
  Serious: Yes (Hospitalization, Disabling)
  Sender: FDA-Public Use
  Company Number: US-MERCK-0511USA01885

PATIENT
  Age: 58 Year
  Sex: Female
  Weight: 84 kg

DRUGS (2)
  1. VIOXX [Suspect]
     Indication: LIGAMENT INJURY
     Route: 048
     Dates: start: 20010725, end: 20040901
  2. TYLENOL (CAPLET) [Concomitant]
     Route: 048

REACTIONS (11)
  - ANXIETY [None]
  - BACK INJURY [None]
  - BACK PAIN [None]
  - CHEST PAIN [None]
  - CYST [None]
  - DEEP VEIN THROMBOSIS [None]
  - HYPERLIPIDAEMIA [None]
  - HYPERTENSION [None]
  - HYPOTHYROIDISM [None]
  - INSOMNIA [None]
  - THROMBOSIS [None]
